FAERS Safety Report 7332509-5 (Version None)
Quarter: 2011Q1

REPORT INFORMATION
  Report Type: 
  Country: None (occurrence: None)
  Receive Date: 20110304
  Receipt Date: 20110228
  Transmission Date: 20110831
  Serious: Yes (Other)
  Sender: FDA-Public Use
  Company Number: IE-ROCHE-763058

PATIENT
  Sex: Male

DRUGS (1)
  1. LARIAM [Suspect]
     Indication: MALARIA PROPHYLAXIS
     Dosage: FREQUENCY: WEEKLY
     Route: 065
     Dates: start: 20080101

REACTIONS (7)
  - TREMOR [None]
  - NERVE INJURY [None]
  - DEPRESSION [None]
  - GAIT DISTURBANCE [None]
  - NERVE ROOT INJURY CERVICAL [None]
  - SPEECH DISORDER [None]
  - BALANCE DISORDER [None]
